FAERS Safety Report 8174665-5 (Version None)
Quarter: 2012Q1

REPORT INFORMATION
  Report Type: 
  Country: None (occurrence: None)
  Receive Date: 20120227
  Receipt Date: 20120213
  Transmission Date: 20120608
  Serious: Yes (Hospitalization, Other)
  Sender: FDA-Public Use
  Company Number: WAES 1110USA03904

PATIENT
  Age: 63 Year
  Sex: Male

DRUGS (13)
  1. FAMOTIDINE [Concomitant]
  2. NITROGLYCERIN [Concomitant]
  3. ZOCOR [Suspect]
     Indication: ACUTE CORONARY SYNDROME
     Dosage: 80 MG/DAILY
     Route: 048
     Dates: start: 20070212
  4. PLACEBO [Suspect]
     Indication: ACUTE CORONARY SYNDROME
     Route: 048
     Dates: start: 20070212
  5. GLIPIZIDE [Concomitant]
  6. ASPIRIN [Concomitant]
  7. HYTRIN [Concomitant]
  8. IMDUR [Concomitant]
  9. VASTAREL [Concomitant]
  10. BISOPROLOL FUMARATE [Concomitant]
  11. ENALAPRIL MALEATE [Concomitant]
  12. KETOTOP [Concomitant]
  13. METFORMIN HCL [Concomitant]

REACTIONS (4)
  - ACUTE MYOCARDIAL INFARCTION [None]
  - CORONARY ARTERY DISEASE [None]
  - COLON CANCER [None]
  - ANGINA UNSTABLE [None]
